FAERS Safety Report 8494400-0 (Version None)
Quarter: 2012Q3

REPORT INFORMATION
  Report Type: 
  Country: None (occurrence: None)
  Receive Date: 20120709
  Receipt Date: 20120702
  Transmission Date: 20120928
  Serious: Yes (Death)
  Sender: FDA-Public Use
  Company Number: US-CELGENEUS-163-21880-12061927

PATIENT
  Sex: Female

DRUGS (1)
  1. REVLIMID [Suspect]
     Indication: MULTIPLE MYELOMA
     Dosage: 5 MILLIGRAM
     Route: 048
     Dates: start: 20120118

REACTIONS (2)
  - DEATH [None]
  - LABORATORY TEST ABNORMAL [None]
